FAERS Safety Report 5321578-X (Version None)
Quarter: 2007Q2

REPORT INFORMATION
  Report Type: 
  Country: None (occurrence: None)
  Receive Date: 20070510
  Receipt Date: 20070503
  Transmission Date: 20071010
  Serious: Yes (Other)
  Sender: FDA-Public Use
  Company Number: GB-ROCHE-492646

PATIENT
  Sex: Male

DRUGS (3)
  1. CAPECITABINE [Suspect]
     Route: 065
  2. CETUXIMAB [Suspect]
     Route: 065
  3. OXALIPLATIN [Suspect]
     Route: 065

REACTIONS (1)
  - PANCREATITIS [None]
